FAERS Safety Report 11204810 (Version 1)
Quarter: 2015Q2

REPORT INFORMATION
  Report Type: Spontaneous
  Country: US (occurrence: None)
  Receive Date: 20150617
  Receipt Date: 20150617
  Transmission Date: 20150821
  Serious: Yes (Other)
  Sender: FDA-Public Use
  Company Number: CO-LA-US-2015-015

PATIENT
  Sex: Female

DRUGS (3)
  1. VENTOLIN HFA [Suspect]
     Active Substance: ALBUTEROL SULFATE
     Indication: CHRONIC OBSTRUCTIVE PULMONARY DISEASE
     Route: 055
  2. COREG [Suspect]
     Active Substance: CARVEDILOL
     Indication: PRODUCT USED FOR UNKNOWN INDICATION
  3. LANOXIN [Suspect]
     Active Substance: DIGOXIN
     Indication: CARDIAC DISORDER

REACTIONS (9)
  - Endometriosis [None]
  - Cholecystectomy [None]
  - Thyroidectomy [None]
  - Tumour excision [None]
  - Hysterectomy [None]
  - Breast lump removal [None]
  - Catheterisation cardiac [None]
  - Cardiac operation [None]
  - Aortic aneurysm [None]
